FAERS Safety Report 4350031-5 (Version None)
Quarter: 2004Q2

REPORT INFORMATION
  Report Type: 
  Country: None (occurrence: None)
  Receive Date: 20040429
  Receipt Date: 20040423
  Transmission Date: 20050107
  Serious: Yes (Other)
  Sender: FDA-Public Use
  Company Number: 200411517JP

PATIENT
  Age: 2 Year
  Sex: 0

DRUGS (1)
  1. CLAFORAN [Suspect]
     Indication: MENINGITIS
     Route: 042

REACTIONS (2)
  - HYPERSENSITIVITY [None]
  - NERVE INJURY [None]
